FAERS Safety Report 9067357 (Version 2)
Quarter: 2013Q1

REPORT INFORMATION
  Report Type: Spontaneous
  Country: PL (occurrence: PL)
  Receive Date: 20130214
  Receipt Date: 20130305
  Transmission Date: 20140127
  Serious: Yes (Death)
  Sender: FDA-Public Use
  Company Number: PL-BAYER-2013-019146

PATIENT
  Sex: Female

DRUGS (1)
  1. ULTRAVIST [Suspect]
     Indication: CORONARY ANGIOPLASTY

REACTIONS (1)
  - Death [Fatal]
